FAERS Safety Report 9452186 (Version 2)
Quarter: 2013Q3

REPORT INFORMATION
  Report Type: Spontaneous
  Country: AR (occurrence: AR)
  Receive Date: 20130812
  Receipt Date: 20130912
  Transmission Date: 20140515
  Serious: Yes (Hospitalization, Other)
  Sender: FDA-Public Use
  Company Number: AR-AMGEN-ARGSP2013056100

PATIENT
  Age: 77 Year
  Sex: Female

DRUGS (1)
  1. ENBREL [Suspect]
     Indication: RHEUMATOID ARTHRITIS
     Dosage: 50 MG, WEEKLY
     Route: 058
     Dates: start: 20090217, end: 201208

REACTIONS (4)
  - Embolism [Recovering/Resolving]
  - Thrombosis [Recovering/Resolving]
  - Lung disorder [Recovered/Resolved]
  - Arrhythmia [Recovered/Resolved]
